FAERS Safety Report 8119037-4 (Version None)
Quarter: 2012Q1

REPORT INFORMATION
  Report Type: 
  Country: None (occurrence: None)
  Receive Date: 20120207
  Receipt Date: 20120202
  Transmission Date: 20120608
  Serious: Yes (Hospitalization, Other)
  Sender: FDA-Public Use
  Company Number: BR-ROCHE-1023865

PATIENT
  Sex: Female
  Weight: 55 kg

DRUGS (10)
  1. PROPANOLOLI HYDROCHLORIDUM [Concomitant]
  2. PANTOGAR (AUSTRIA) [Concomitant]
  3. MABTHERA [Suspect]
     Indication: RHEUMATOID ARTHRITIS
     Route: 042
     Dates: start: 20110212, end: 20110713
  4. CHLOROQUINE PHOSPHATE [Concomitant]
  5. FUROSEMIDE [Concomitant]
  6. MABTHERA [Suspect]
     Dates: end: 20110728
  7. FLUOXETINE HCL [Concomitant]
  8. FORMOTEROL FUMARATE [Concomitant]
  9. TORAGESIC [Concomitant]
  10. BROMAZEPAM [Concomitant]

REACTIONS (3)
  - URINARY TRACT INFECTION [None]
  - SWELLING [None]
  - HAEMATEMESIS [None]
